FAERS Safety Report 9499868 (Version 1)
Quarter: 2013Q1

REPORT INFORMATION
  Report Type: Spontaneous
  Country: US (occurrence: None)
  Receive Date: 20130107
  Receipt Date: 20130107
  Transmission Date: 20140127
  Serious: No
  Sender: FDA-Public Use
  Company Number: PHEH2012US023289

PATIENT
  Age: 57 Year
  Sex: Female
  Weight: 53.1 kg

DRUGS (1)
  1. GILENYA [Suspect]
     Route: 048
     Dates: start: 20121119

REACTIONS (5)
  - Urinary tract disorder [None]
  - Chills [None]
  - Abdominal pain [None]
  - Back pain [None]
  - Diarrhoea [None]
